FAERS Safety Report 25900080 (Version 2)
Quarter: 2025Q4

REPORT INFORMATION
  Report Type: Report from Study
  Country: MX (occurrence: MX)
  Receive Date: 20251009
  Receipt Date: 20251016
  Transmission Date: 20260118
  Serious: Yes (Death, Hospitalization, Disabling, Other)
  Sender: DAIICHI
  Company Number: MX-AstraZeneca-CH-00930704A

PATIENT
  Age: 61 Year
  Sex: Female

DRUGS (22)
  1. ENHERTU [Suspect]
     Active Substance: FAM-TRASTUZUMAB DERUXTECAN-NXKI
     Indication: Breast cancer
     Dosage: 210 MG, ONCE EVERY 3 WK
     Route: 042
     Dates: start: 2024
  2. ENHERTU [Suspect]
     Active Substance: FAM-TRASTUZUMAB DERUXTECAN-NXKI
     Dosage: 100 MG, ONCE EVERY 1 WK
     Route: 042
     Dates: start: 20240924, end: 20240924
  3. HYDROCHLOROTHIAZIDE\TELMISARTAN [Concomitant]
     Active Substance: HYDROCHLOROTHIAZIDE\TELMISARTAN
     Indication: Blood pressure measurement
     Dosage: 1 DOSAGE FORM, QD
     Route: 065
  4. HYDROCHLOROTHIAZIDE\TELMISARTAN [Concomitant]
     Active Substance: HYDROCHLOROTHIAZIDE\TELMISARTAN
     Dosage: 0.5 DOSAGE FORM, QD
     Route: 065
  5. HYDROCHLOROTHIAZIDE\TELMISARTAN [Concomitant]
     Active Substance: HYDROCHLOROTHIAZIDE\TELMISARTAN
     Dosage: 0.25 DOSAGE FORM, QD
     Route: 065
  6. BUPRENORPHINE [Concomitant]
     Active Substance: BUPRENORPHINE
     Indication: Pain in extremity
     Dosage: 30 MILLIGRAM
     Route: 065
  7. PREGABALIN [Concomitant]
     Active Substance: PREGABALIN
     Indication: Product used for unknown indication
     Dosage: 75 MG, ONCE EVERY 12HR
     Route: 065
  8. SENOSIDOS AB [Concomitant]
     Indication: Product used for unknown indication
     Dosage: UNK UNK, ONCE EVERY 12HR
     Route: 065
  9. ONDANSETRON [Concomitant]
     Active Substance: ONDANSETRON
     Indication: Nausea
     Dosage: 8 MG, ONCE EVERY 12HR
     Route: 065
  10. ONDANSETRON [Concomitant]
     Active Substance: ONDANSETRON
     Indication: Vomiting
  11. ACETAMINOPHEN [Concomitant]
     Active Substance: ACETAMINOPHEN
     Indication: Product used for unknown indication
     Dosage: 500 MG, ONCE EVERY 8HR
     Route: 065
  12. DULOXETINE [Concomitant]
     Active Substance: DULOXETINE
     Indication: Product used for unknown indication
     Dosage: 30 MILLIGRAM, QD
     Route: 065
  13. OMEPRAZOLE [Concomitant]
     Active Substance: OMEPRAZOLE
     Indication: Product used for unknown indication
     Dosage: 20 MG, ONCE EVERY 12HR
     Route: 065
  14. MAGNESIUM HYDROXIDE [Concomitant]
     Active Substance: MAGNESIUM HYDROXIDE
     Indication: Product used for unknown indication
     Dosage: UNK UNK, ONCE EVERY 12HR
     Route: 065
  15. MAGNESIUM HYDROXIDE [Concomitant]
     Active Substance: MAGNESIUM HYDROXIDE
     Dosage: UNK, QD
     Route: 065
  16. ALUMINUM [Concomitant]
     Active Substance: ALUMINUM
     Indication: Product used for unknown indication
     Dosage: UNK UNK, ONCE EVERY 12HR
     Route: 065
  17. ALUMINUM [Concomitant]
     Active Substance: ALUMINUM
     Dosage: UNK UNK, QD
     Route: 065
  18. PINAVERIO [Concomitant]
     Indication: Gastritis
     Dosage: 100 MG, ONCE EVERY 8HR
     Route: 065
  19. LETROZOLE [Concomitant]
     Active Substance: LETROZOLE
     Indication: Product used for unknown indication
     Dosage: 2.5 MILLIGRAM, QD
     Route: 065
  20. GEMCITABINA [GEMCITABINE HYDROCHLORIDE] [Concomitant]
     Indication: Breast cancer
     Dosage: 10 MG, ONCE EVERY 1 WK
     Route: 042
     Dates: start: 20250924, end: 20250924
  21. LEVOFLOXACIN [Concomitant]
     Active Substance: LEVOFLOXACIN
     Indication: Product used for unknown indication
     Dosage: 500 MG, QD, FOR 7 DAYS
     Route: 048
  22. CLINDAMICINA [CLINDAMYCIN PHOSPHATE] [Concomitant]
     Indication: Product used for unknown indication
     Dosage: 300 MG, ONCE EVERY 8HR FOR 7 DAYS
     Route: 065

REACTIONS (22)
  - Cachexia [Fatal]
  - Lung neoplasm [Not Recovered/Not Resolved]
  - Malignant neoplasm progression [Unknown]
  - Neoplasm [Unknown]
  - Monoplegia [Unknown]
  - Decreased appetite [Fatal]
  - White blood cell count increased [Fatal]
  - Skin laceration [Fatal]
  - Infection [Fatal]
  - Decubitus ulcer [Fatal]
  - Hypovolaemic shock [Fatal]
  - Lower gastrointestinal haemorrhage [Fatal]
  - Drug ineffective [Fatal]
  - Fatigue [Unknown]
  - Vomiting [Unknown]
  - Dizziness [Unknown]
  - Muscle spasms [Unknown]
  - Nausea [Unknown]
  - Asthenia [Unknown]
  - Inflammation [Unknown]
  - Peripheral swelling [Unknown]
  - Diarrhoea [Not Recovered/Not Resolved]

NARRATIVE: CASE EVENT DATE: 20250101
